FAERS Safety Report 15478067 (Version 1)
Quarter: 2018Q4

REPORT INFORMATION
  Report Type: Spontaneous
  Country: US (occurrence: US)
  Receive Date: 20181002
  Receipt Date: 20181002
  Transmission Date: 20190205
  Serious: No
  Sender: FDA-Public Use
  Company Number: None

PATIENT
  Age: 33 Year
  Sex: Female

DRUGS (1)
  1. LUPRON DEPOT [Suspect]
     Active Substance: LEUPROLIDE ACETATE
     Indication: ENDOMETRIOSIS
     Dosage: 11.25MG 90 DAYS INTRAMUSCULARLY
     Route: 030
     Dates: start: 20180409, end: 20180928

REACTIONS (3)
  - Weight increased [None]
  - Arthralgia [None]
  - Hot flush [None]

NARRATIVE: CASE EVENT DATE: 20180409
